FAERS Safety Report 6991676-3 (Version None)
Quarter: 2010Q3

REPORT INFORMATION
  Report Type: 
  Country: None (occurrence: None)
  Receive Date: 20100917
  Receipt Date: 20100903
  Transmission Date: 20110219
  Serious: Yes (Other)
  Sender: FDA-Public Use
  Company Number: PHHY2010JP59548

PATIENT
  Age: 31 Year
  Sex: Male

DRUGS (8)
  1. TEGRETOL [Suspect]
     Indication: TEMPORAL LOBE EPILEPSY
     Dosage: 400 MG DAILY
  2. TEGRETOL [Suspect]
     Dosage: 800 MG DAILY
  3. INTERFERON ALFA-2B [Suspect]
     Dosage: 100 MCG WEEKLY
     Dates: start: 20050811
  4. WARFARIN POTASSIUM [Concomitant]
     Indication: DEEP VEIN THROMBOSIS
     Dosage: 1.5 MG DAILY
  5. BUCOLOME [Concomitant]
     Indication: DEEP VEIN THROMBOSIS
     Dosage: 300 MG DAILY
     Route: 048
  6. RIBAVIRIN [Concomitant]
     Indication: HEPATIC FUNCTION ABNORMAL
     Dosage: 800 MG DAILY
     Dates: start: 20050811
  7. DEMETHYLCHLORTETRACYCLINE [Concomitant]
     Dosage: 900 MG DAILY
  8. LITHIUM CARBONATE [Concomitant]
     Dosage: 400 MG DAILY

REACTIONS (8)
  - BLOOD ANTIDIURETIC HORMONE INCREASED [None]
  - BLOOD OSMOLARITY DECREASED [None]
  - DEEP VEIN THROMBOSIS [None]
  - FATIGUE [None]
  - HYPONATRAEMIA [None]
  - INAPPROPRIATE ANTIDIURETIC HORMONE SECRETION [None]
  - LIVER DISORDER [None]
  - URINE SODIUM INCREASED [None]
